FAERS Safety Report 4384853-1 (Version None)
Quarter: 2004Q2

REPORT INFORMATION
  Report Type: 
  Country: None (occurrence: None)
  Receive Date: 20040623
  Receipt Date: 20040623
  Transmission Date: 20050107
  Serious: No
  Sender: FDA-Public Use
  Company Number: None

PATIENT
  Age: 59 Year
  Sex: Male

DRUGS (1)
  1. METHOTREXATE [Suspect]
     Indication: PSORIASIS
     Dosage: 7.5 MG PO Q WEEK
     Route: 048

REACTIONS (3)
  - OEDEMA MOUTH [None]
  - ORAL MUCOSAL BLISTERING [None]
  - STOMATITIS [None]
